FAERS Safety Report 9260611 (Version 5)
Quarter: 2013Q3

REPORT INFORMATION
  Report Type: Report from Study
  Country: DE (occurrence: DE)
  Receive Date: 20130429
  Receipt Date: 20130910
  Transmission Date: 20140515
  Serious: Yes (Death, Hospitalization, Other)
  Sender: FDA-Public Use
  Company Number: DE-BRISTOL-MYERS SQUIBB COMPANY-18753897

PATIENT
  Age: 74 Year
  Sex: Female

DRUGS (23)
  1. PACLITAXEL [Suspect]
     Indication: BREAST CANCER
     Dosage: LAST DOSE-20MAR13
     Route: 042
     Dates: start: 20120918, end: 20130320
  2. TRASTUZUMAB [Suspect]
     Dosage: LAST DOSE-20MAR13
     Route: 042
     Dates: start: 20120918
  3. PERTUZUMAB [Suspect]
     Dosage: LAST DOSE-20MAR13
     Route: 042
     Dates: start: 20120918
  4. CORDAREX [Concomitant]
     Dates: end: 20130409
  5. SPIRONOLACTONE [Concomitant]
     Dates: end: 20130409
  6. CLOPIDOGREL BISULFATE [Concomitant]
     Dates: end: 20130409
  7. PRADAXA [Concomitant]
     Dates: end: 20130409
  8. DIPYRONE [Concomitant]
     Indication: PAIN
     Dosage: 1DF: 30 UNITS NOS
     Dates: start: 20120824
  9. TELMISARTAN+AMLODIPINE BESYLATE [Concomitant]
     Dates: start: 20120824
  10. BELOC-ZOK [Concomitant]
     Dosage: 6NOV2012-ONGOING.
     Dates: start: 20120824
  11. METOPROLOL SUCCINATE + HCTZ [Concomitant]
     Dosage: 1DF: 1/2 UNITS NOS
     Dates: start: 20120824
  12. CIMICIFUGA [Concomitant]
     Indication: HOT FLUSH
     Dosage: 1DF: 2 UNITS NOS
     Dates: start: 20120824
  13. BROMAZEPAM [Concomitant]
     Indication: STRESS
     Dates: start: 20120824
  14. DENOSUMAB [Concomitant]
     Indication: METASTASES TO BONE
     Dates: start: 20120925
  15. CALCIUM + VITAMIN D [Concomitant]
  16. CIMETIDINE [Concomitant]
     Dosage: ONGOING.
     Dates: start: 20120918
  17. CEFUROXIME [Concomitant]
     Dosage: ONGOING.
     Dates: start: 20121008
  18. CLEXANE [Concomitant]
     Dates: start: 20121106
  19. ZOFRAN [Concomitant]
     Dates: start: 20120918
  20. FORTECORTIN [Concomitant]
     Dates: start: 20120918
  21. PASPERTIN [Concomitant]
     Dates: start: 20120918
  22. VOMEX A [Concomitant]
     Dates: start: 20120918
  23. TAVEGIL [Concomitant]
     Dosage: 1 VIAL
     Dates: start: 20120918

REACTIONS (4)
  - General physical health deterioration [Fatal]
  - Pneumonitis [Fatal]
  - Anaemia [Unknown]
  - Peripheral motor neuropathy [Unknown]
